FAERS Safety Report 13355377 (Version 4)
Quarter: 2019Q4

REPORT INFORMATION
  Report Type: Report from Study
  Country: None (occurrence: BE)
  Receive Date: 20170321
  Receipt Date: 20191104
  Transmission Date: 20200122
  Serious: Yes (Hospitalization)
  Sender: FDA-Public Use
  Company Number: BE-BIOVITRUM-2017BE0305

PATIENT
  Age: 26 Year
  Sex: Female

DRUGS (4)
  1. ORFADIN [Suspect]
     Active Substance: NITISINONE
     Indication: TYROSINAEMIA
     Route: 065
     Dates: start: 19940105
  2. ORFADIN [Suspect]
     Active Substance: NITISINONE
     Route: 065
     Dates: start: 20090114
  3. ORFADIN [Suspect]
     Active Substance: NITISINONE
     Route: 065
     Dates: start: 20110906
  4. ORFADIN [Suspect]
     Active Substance: NITISINONE
     Route: 065
     Dates: start: 20131115

REACTIONS (4)
  - Sepsis [Unknown]
  - Tenosynovitis [Unknown]
  - Acute kidney injury [Recovered/Resolved]
  - Device related sepsis [Unknown]

NARRATIVE: CASE EVENT DATE: 20161223
